FAERS Safety Report 16699634 (Version 1)
Quarter: 2019Q3

REPORT INFORMATION
  Report Type: Report from Study
  Country: CO (occurrence: CO)
  Receive Date: 20190813
  Receipt Date: 20190813
  Transmission Date: 20191004
  Serious: Yes (Hospitalization, Other)
  Sender: FDA-Public Use
  Company Number: CO-SEATTLE GENETICS-2019SGN02818

PATIENT
  Age: 14 Year
  Weight: 46 kg

DRUGS (1)
  1. BRENTUXIMAB VEDOTIN-MPI [Suspect]
     Active Substance: BRENTUXIMAB VEDOTIN
     Indication: HODGKIN^S DISEASE
     Dosage: 81 MG, Q21D
     Route: 042
     Dates: start: 20190528

REACTIONS (1)
  - Benign neoplasm [Not Recovered/Not Resolved]

NARRATIVE: CASE EVENT DATE: 20190805
